FAERS Safety Report 13611467 (Version 2)
Quarter: 2017Q3

REPORT INFORMATION
  Report Type: Report from Study
  Country: JP (occurrence: JP)
  Receive Date: 20170605
  Receipt Date: 20170705
  Transmission Date: 20171127
  Serious: Yes (Hospitalization)
  Sender: FDA-Public Use
  Company Number: JP-PFIZER INC-2017238002

PATIENT
  Age: 35 Year
  Sex: Female

DRUGS (2)
  1. XELJANZ [Suspect]
     Active Substance: TOFACITINIB CITRATE
     Indication: RHEUMATOID ARTHRITIS
     Dosage: UNK, DAILY
     Route: 048
     Dates: start: 20151209
  2. EPOPROSTENOL. [Suspect]
     Active Substance: EPOPROSTENOL
     Route: 042

REACTIONS (1)
  - Catheter removal [Recovered/Resolved]

NARRATIVE: CASE EVENT DATE: 20170527
